FAERS Safety Report 12157315 (Version 2)
Quarter: 2016Q2

REPORT INFORMATION
  Report Type: Spontaneous
  Country: IT (occurrence: IT)
  Receive Date: 20160308
  Receipt Date: 20160404
  Transmission Date: 20160815
  Serious: Yes (Life-Threatening)
  Sender: FDA-Public Use
  Company Number: IT-ROCHE-1717186

PATIENT
  Age: 57 Year
  Sex: Female

DRUGS (3)
  1. PERJETA [Suspect]
     Active Substance: PERTUZUMAB
     Indication: BREAST CANCER RECURRENT
     Dosage: 420 MG -VIAL (GLASS) - 30 MG/ML - 1 VIAL
     Route: 042
     Dates: end: 20160205
  2. HERCEPTIN [Concomitant]
     Active Substance: TRASTUZUMAB
     Dosage: PERIOD: 21 DAYS
     Route: 042
  3. PACLITAXEL. [Concomitant]
     Active Substance: PACLITAXEL
     Dosage: PERIOD: 7 DAYS
     Route: 042

REACTIONS (4)
  - Erythema [Recovered/Resolved]
  - Hypersensitivity [Recovered/Resolved]
  - Hypotension [Recovered/Resolved]
  - Acute respiratory distress syndrome [Recovered/Resolved]

NARRATIVE: CASE EVENT DATE: 20160205
